FAERS Safety Report 10130938 (Version 2)
Quarter: 2014Q2

REPORT INFORMATION
  Report Type: Report from Study
  Country: US (occurrence: US)
  Receive Date: 20140428
  Receipt Date: 20140428
  Transmission Date: 20141212
  Serious: Yes (Death, Hospitalization, Other)
  Sender: FDA-Public Use
  Company Number: US-ROCHE-GNE283492

PATIENT
  Sex: 0

DRUGS (4)
  1. RITUXIMAB [Suspect]
     Indication: CHRONIC LYMPHOCYTIC LEUKAEMIA
     Dosage: 375 MG/M2 EVERY OTHER WEEK STARTING 3RD WEEK FOR A TOTAL OF 8 DOSES.
     Route: 042
  2. ALEMTUZUMAB [Suspect]
     Indication: CHRONIC LYMPHOCYTIC LEUKAEMIA
     Dosage: THREE TIMES PER WEEK FOR 17 WEEKS AFTER THE INITIAL 1ST WEEK DOSE ESCALATION (3MG -10 MG -30 MG) FOR
     Route: 058
  3. SULFAMETHOXAZOLE/TRIMETHOPRIM [Suspect]
     Indication: ANTIFUNGAL PROPHYLAXIS
     Dosage: DS (160-800 MG) GIVEN 3 TIMES PER WEEK
     Route: 065
  4. PHENCYCLIDINE HYDROCHLORIDE [Concomitant]
     Indication: PROPHYLAXIS

REACTIONS (24)
  - Oesophageal carcinoma [Fatal]
  - Cytomegalovirus infection [Unknown]
  - Febrile neutropenia [Unknown]
  - Clostridium difficile colitis [Unknown]
  - Adenovirus infection [Unknown]
  - Rash [Unknown]
  - Pyrexia [Unknown]
  - Pneumonia [Unknown]
  - Neutropenia [Unknown]
  - Pancytopenia [Unknown]
  - Lymphopenia [Unknown]
  - Thrombocytopenia [Unknown]
  - Autoimmune haemolytic anaemia [Unknown]
  - Haemolytic anaemia [Unknown]
  - Infection [Unknown]
  - Nephropathy toxic [Unknown]
  - Fatigue [Unknown]
  - Basal cell carcinoma [Unknown]
  - Squamous cell carcinoma [Unknown]
  - Plasma cell myeloma [Unknown]
  - Chronic myeloid leukaemia [Unknown]
  - Bladder adenocarcinoma stage unspecified [Unknown]
  - Colon cancer metastatic [Unknown]
  - Metastatic carcinoma of the bladder [Unknown]
